FAERS Safety Report 9801177 (Version 2)
Quarter: 2014Q1

REPORT INFORMATION
  Report Type: Spontaneous
  Country: US (occurrence: US)
  Receive Date: 20140107
  Receipt Date: 20140313
  Transmission Date: 20141002
  Serious: Yes (Other)
  Sender: FDA-Public Use
  Company Number: US-INCYTE CORPORATION-2013IN003121

PATIENT
  Age: 77 Year
  Sex: Male
  Weight: 85.71 kg

DRUGS (3)
  1. JAKAFI [Suspect]
     Indication: MYELOFIBROSIS
     Dosage: 5 MG, BID
     Route: 048
     Dates: start: 20130814, end: 20131030
  2. LEVOTHYROXINE [Concomitant]
  3. PROCRIT                            /00909301/ [Concomitant]

REACTIONS (3)
  - Terminal state [Unknown]
  - Pancytopenia [Unknown]
  - Blood product transfusion dependent [Unknown]
